FAERS Safety Report 23254869 (Version 1)
Quarter: 2023Q4

REPORT INFORMATION
  Report Type: Spontaneous
  Country: US (occurrence: US)
  Receive Date: 20231203
  Receipt Date: 20231203
  Transmission Date: 20240110
  Serious: Yes (Other)
  Sender: FDA-Public Use
  Company Number: US-AMNEAL PHARMACEUTICALS-2023-AMRX-00691

PATIENT
  Age: 23 Year
  Sex: Female

DRUGS (1)
  1. ISOTRETINOIN [Suspect]
     Active Substance: ISOTRETINOIN
     Indication: Product used for unknown indication
     Dosage: 40 MG, QD
     Route: 065
     Dates: start: 20230217, end: 20230227

REACTIONS (7)
  - Maternal exposure during pregnancy [Unknown]
  - Pustule [Unknown]
  - Papule [Unknown]
  - Scar [Unknown]
  - Chapped lips [Unknown]
  - Lip dry [Unknown]
  - Dry skin [Unknown]

NARRATIVE: CASE EVENT DATE: 20230227
